FAERS Safety Report 6156860-X (Version None)
Quarter: 2009Q2

REPORT INFORMATION
  Report Type: 
  Country: None (occurrence: None)
  Receive Date: 20090416
  Receipt Date: 20090414
  Transmission Date: 20091009
  Serious: Yes (Hospitalization)
  Sender: FDA-Public Use
  Company Number: US-BRISTOL-MYERS SQUIBB COMPANY-14587034

PATIENT
  Age: 76 Year
  Sex: Male
  Weight: 89 kg

DRUGS (11)
  1. CARBOPLATIN [Suspect]
     Indication: NON-SMALL CELL LUNG CANCER
     Route: 042
     Dates: start: 20090106
  2. PACLITAXEL [Suspect]
     Indication: NON-SMALL CELL LUNG CANCER
     Route: 042
     Dates: start: 20090106
  3. CP-751,871 [Suspect]
     Indication: NON-SMALL CELL LUNG CANCER
     Route: 042
     Dates: start: 20090106
  4. ACETYLSALICYLIC ACID SRT [Concomitant]
  5. ATENOLOL [Concomitant]
  6. CRESTOR [Concomitant]
  7. GLIPIZIDE [Concomitant]
  8. LISINOPRIL [Concomitant]
  9. METFORMIN HCL [Concomitant]
  10. ZYRTEC [Concomitant]
  11. PHENERGAN [Concomitant]

REACTIONS (1)
  - HYPONATRAEMIA [None]
